FAERS Safety Report 8428692-0 (Version None)
Quarter: 2012Q2

REPORT INFORMATION
  Report Type: 
  Country: None (occurrence: None)
  Receive Date: 20120605
  Receipt Date: 20120524
  Transmission Date: 20120825
  Serious: Yes (Hospitalization)
  Sender: FDA-Public Use
  Company Number: DKLU1079597

PATIENT
  Age: 7 Month
  Sex: Male

DRUGS (2)
  1. KLONOPIN [Concomitant]
  2. SABRIL [Suspect]
     Indication: INFANTILE SPASMS
     Dosage: 200;400;600 MG, 2 IN 1 D, ORAL OR G-TUBE
     Route: 048
     Dates: start: 20120405

REACTIONS (2)
  - DRUG INEFFECTIVE [None]
  - LUNG DISORDER [None]
